FAERS Safety Report 4300101-2 (Version None)
Quarter: 2004Q1

REPORT INFORMATION
  Report Type: 
  Country: None (occurrence: None)
  Receive Date: 20040219
  Receipt Date: 20040219
  Transmission Date: 20041129
  Serious: Yes (Hospitalization)
  Sender: FDA-Public Use
  Company Number: None

PATIENT
  Age: 49 Year
  Sex: Male

DRUGS (2)
  1. PERCOCET-5 [Suspect]
     Indication: PAIN
  2. CEPHALEXIN [Concomitant]

REACTIONS (7)
  - ABDOMINAL PAIN [None]
  - DRUG TOXICITY [None]
  - LIVER FUNCTION TEST ABNORMAL [None]
  - MEDICATION ERROR [None]
  - NAUSEA [None]
  - OVERDOSE [None]
  - VOMITING [None]
